FAERS Safety Report 12541805 (Version 1)
Quarter: 2016Q3

REPORT INFORMATION
  Report Type: Spontaneous
  Country: US (occurrence: US)
  Receive Date: 20160708
  Receipt Date: 20160708
  Transmission Date: 20161109
  Serious: Yes (Other)
  Sender: FDA-Public Use
  Company Number: US-BAXALTA-2016BLT004858

PATIENT
  Sex: Male

DRUGS (1)
  1. ADVATE [Suspect]
     Active Substance: ANTIHEMOPHILIC FACTOR, HUMAN RECOMBINANT
     Indication: PROPHYLAXIS
     Dosage: 3000 IU, EVERY 2 DY
     Route: 065
     Dates: end: 2016

REACTIONS (3)
  - Arthropathy [Unknown]
  - Haemorrhage [Unknown]
  - Haemarthrosis [Unknown]
